APPROVED DRUG PRODUCT: DIONOSIL AQUEOUS
Active Ingredient: PROPYLIODONE
Strength: 50%
Dosage Form/Route: SUSPENSION;INTRATRACHEAL
Application: N009309 | Product #001
Applicant: GLAXOSMITHKLINE
Approved: Approved Prior to Jan 1, 1982 | RLD: No | RS: No | Type: DISCN